FAERS Safety Report 8167041-2 (Version None)
Quarter: 2012Q1

REPORT INFORMATION
  Report Type: 
  Country: None (occurrence: None)
  Receive Date: 20120103
  Receipt Date: 20111013
  Transmission Date: 20120608
  Serious: No
  Sender: FDA-Public Use
  Company Number: AE-2011-002300

PATIENT
  Age: 58 Year
  Sex: Female
  Weight: 59.8748 kg

DRUGS (5)
  1. ZOLOFT [Concomitant]
  2. RIBAVIRIN [Concomitant]
  3. PEGASYS [Concomitant]
  4. INCIVEK [Suspect]
     Dosage: 2250 MG (1125 MG, 2 IN 1 D)
     Dates: start: 20110801
  5. PHENERGAN [Concomitant]

REACTIONS (8)
  - ANORECTAL DISCOMFORT [None]
  - DECREASED APPETITE [None]
  - ANAEMIA [None]
  - DEPRESSED MOOD [None]
  - ANXIETY [None]
  - HEADACHE [None]
  - NAUSEA [None]
  - ANAL PRURITUS [None]
